FAERS Safety Report 8133069-1 (Version None)
Quarter: 2012Q1

REPORT INFORMATION
  Report Type: 
  Country: None (occurrence: None)
  Receive Date: 20120213
  Receipt Date: 20120201
  Transmission Date: 20120608
  Serious: Yes (Disabling, Other)
  Sender: FDA-Public Use
  Company Number: MX-ROCHE-1032571

PATIENT
  Age: 54 Year
  Sex: Female

DRUGS (5)
  1. LUCENTIS [Suspect]
     Indication: AGE-RELATED MACULAR DEGENERATION
     Route: 050
     Dates: start: 20111103
  2. LUCENTIS [Suspect]
     Route: 050
     Dates: start: 20111215
  3. LUCENTIS [Suspect]
     Route: 050
     Dates: start: 20111210
  4. LUCENTIS [Suspect]
     Route: 050
     Dates: start: 20111208
  5. MOXIFLOXACIN [Concomitant]

REACTIONS (4)
  - DIABETES MELLITUS INADEQUATE CONTROL [None]
  - ENDOPHTHALMITIS [None]
  - INAPPROPRIATE SCHEDULE OF DRUG ADMINISTRATION [None]
  - DEPRESSION [None]
